FAERS Safety Report 17463606 (Version 1)
Quarter: 2020Q1

REPORT INFORMATION
  Report Type: Spontaneous
  Country: AU (occurrence: AU)
  Receive Date: 20200226
  Receipt Date: 20200226
  Transmission Date: 20200409
  Serious: Yes (Other)
  Sender: FDA-Public Use
  Company Number: AU-BEH-2020113290

PATIENT
  Sex: Male

DRUGS (10)
  1. HUMAN FACTOR VIII (INN) [Suspect]
     Active Substance: ANTIHEMOPHILIC FACTOR HUMAN
     Dosage: 130 INTERNATIONAL UNIT (130 UNITS)
     Route: 065
     Dates: start: 19860117
  2. HUMAN FACTOR VIII (INN) [Suspect]
     Active Substance: ANTIHEMOPHILIC FACTOR HUMAN
     Dosage: 800 INTERNATIONAL UNIT (APPROX 800 UNITS)
     Route: 065
     Dates: start: 19851214
  3. HUMAN FACTOR VIII (INN) [Suspect]
     Active Substance: ANTIHEMOPHILIC FACTOR HUMAN
     Indication: HAEMARTHROSIS
     Dosage: 130 INTERNATIONAL UNIT (130 UNITS)
     Route: 065
     Dates: start: 19860102
  4. HUMAN FACTOR VIII (INN) [Suspect]
     Active Substance: ANTIHEMOPHILIC FACTOR HUMAN
     Dosage: 320 INTERNATIONAL UNIT (320 UNITS)
     Route: 065
     Dates: start: 19850413
  5. HUMAN FACTOR VIII (INN) [Suspect]
     Active Substance: ANTIHEMOPHILIC FACTOR HUMAN
     Dosage: X 4
     Route: 065
     Dates: start: 19851214
  6. HUMAN FACTOR VIII (INN) [Suspect]
     Active Substance: ANTIHEMOPHILIC FACTOR HUMAN
     Dosage: 690 INTERNATIONAL UNIT (3 X 230 UNITS)
     Route: 065
     Dates: start: 19860117
  7. HUMAN FACTOR VIII (INN) [Suspect]
     Active Substance: ANTIHEMOPHILIC FACTOR HUMAN
     Dosage: 2000 INTERNATIONAL UNIT (500 UNITS X 4)
     Route: 065
     Dates: start: 19850413
  8. HUMAN FACTOR VIII (INN) [Suspect]
     Active Substance: ANTIHEMOPHILIC FACTOR HUMAN
     Dosage: 675 INTERNATIONAL UNIT (135 UNITS X 5)
     Route: 065
     Dates: start: 19850923
  9. HUMAN FACTOR VIII (INN) [Suspect]
     Active Substance: ANTIHEMOPHILIC FACTOR HUMAN
     Indication: HAEMOPHILIA
     Dosage: 675 INTERNATIONAL UNIT (225 U X 3)
     Route: 065
     Dates: start: 19860102
  10. HUMAN FACTOR VIII (INN) [Suspect]
     Active Substance: ANTIHEMOPHILIC FACTOR HUMAN
     Dosage: X 3
     Route: 065
     Dates: start: 19851214

REACTIONS (2)
  - Hepatitis post transfusion [Unknown]
  - Suspected transmission of an infectious agent via product [Unknown]

NARRATIVE: CASE EVENT DATE: 1993
